FAERS Safety Report 12334523 (Version 2)
Quarter: 2016Q3

REPORT INFORMATION
  Report Type: Spontaneous
  Country: US (occurrence: US)
  Receive Date: 20160504
  Receipt Date: 20160721
  Transmission Date: 20161109
  Serious: No
  Sender: FDA-Public Use
  Company Number: US-PFIZER INC-2016137069

PATIENT
  Age: 77 Year
  Sex: Female
  Weight: 73 kg

DRUGS (17)
  1. AROMASIN [Suspect]
     Active Substance: EXEMESTANE
     Indication: LOBULAR BREAST CARCINOMA IN SITU
  2. CARVEDILOL. [Concomitant]
     Active Substance: CARVEDILOL
     Dosage: 25 MG, 2X/DAY
     Route: 048
  3. GLYBURIDE. [Concomitant]
     Active Substance: GLYBURIDE
     Dosage: 5 MG, 1X/DAY (5MG TBALET PO PM)
     Route: 048
  4. LANTUS [Concomitant]
     Active Substance: INSULIN GLARGINE
     Dosage: UNK, 1X/DAY (20 UNITS (OF 100 UNITS/ML) SUBCUTANEOUS AT BEDTIME)
     Route: 058
     Dates: start: 20151028
  5. OXYBUTYNIN CHLORIDE. [Concomitant]
     Active Substance: OXYBUTYNIN CHLORIDE
     Dosage: 20 MG, 1X/DAY
     Route: 048
  6. PRILOSEC [Concomitant]
     Active Substance: OMEPRAZOLE MAGNESIUM
     Dosage: 20 MG, DAILY
     Route: 048
  7. SUPER VITAMIN B COMPLEX [Concomitant]
     Dosage: 1 DF, DAILY
     Route: 048
  8. AROMASIN [Suspect]
     Active Substance: EXEMESTANE
     Indication: BREAST CANCER
     Dosage: 25 MG, DAILY
     Route: 048
     Dates: start: 20160203, end: 201603
  9. FERROUS SULFATE. [Concomitant]
     Active Substance: FERROUS SULFATE
     Dosage: 325 MG, DAILY
     Route: 048
  10. GARLIC. [Concomitant]
     Active Substance: GARLIC
     Dosage: 1000 MG, DAILY
     Route: 048
  11. AMLODIPINE BESYLATE. [Concomitant]
     Active Substance: AMLODIPINE BESYLATE
     Dosage: 10 MG, DAILY
     Route: 048
  12. FENOFIBRIC ACID. [Concomitant]
     Active Substance: FENOFIBRIC ACID
     Dosage: 135 MG, DAILY
     Route: 048
  13. GABAPENTIN. [Concomitant]
     Active Substance: GABAPENTIN
     Dosage: 300 MG, 3X/DAY
     Route: 048
  14. GLYBURIDE. [Concomitant]
     Active Substance: GLYBURIDE
     Dosage: 10 MG, 1X/DAY (5MG 2 TABLET EVERY AM)
     Route: 048
  15. VITAMIN B12 [Concomitant]
     Active Substance: CYANOCOBALAMIN
     Dosage: 1000 UG, DAILY
     Route: 048
  16. VITAMIN D3 [Concomitant]
     Active Substance: CHOLECALCIFEROL
     Dosage: 1000 IU, 2X/DAY (1000 UNITS)
     Route: 048
  17. COENZYME Q10 [Concomitant]
     Active Substance: UBIDECARENONE
     Dosage: 200 MG, DAILY
     Route: 048

REACTIONS (19)
  - Diarrhoea [Unknown]
  - Arthritis [Unknown]
  - Pain [Unknown]
  - Upper respiratory tract infection [Unknown]
  - Headache [Recovered/Resolved]
  - Lip swelling [Recovered/Resolved]
  - Rash erythematous [Unknown]
  - Hot flush [Unknown]
  - Pruritus [Recovered/Resolved]
  - Hypersensitivity [Unknown]
  - Eye swelling [Recovered/Resolved]
  - Dry mouth [Unknown]
  - Swelling [Recovered/Resolved]
  - Condition aggravated [Unknown]
  - Constipation [Unknown]
  - Urinary incontinence [Unknown]
  - Cough [Recovering/Resolving]
  - Fatigue [Unknown]
  - Neuropathy peripheral [Unknown]
